FAERS Safety Report 23216863 (Version 1)
Quarter: 2023Q4

REPORT INFORMATION
  Report Type: Spontaneous
  Country: US (occurrence: US)
  Receive Date: 20231122
  Receipt Date: 20231122
  Transmission Date: 20240110
  Serious: Yes (Hospitalization, Other)
  Sender: FDA-Public Use
  Company Number: US-ViiV Healthcare Limited-US2023GSK159527

PATIENT

DRUGS (4)
  1. DOLUTEGRAVIR [Interacting]
     Active Substance: DOLUTEGRAVIR
     Indication: HIV infection
     Dosage: UNK
  2. TRIAMCINOLONE ACETONIDE [Interacting]
     Active Substance: TRIAMCINOLONE ACETONIDE
     Indication: Arthralgia
     Dosage: 40 MG
     Route: 042
  3. COBICISTAT\DARUNAVIR ETHANOLATE [Interacting]
     Active Substance: COBICISTAT\DARUNAVIR ETHANOLATE
     Indication: HIV infection
     Dosage: UNK
  4. DULAGLUTIDE [Concomitant]
     Active Substance: DULAGLUTIDE
     Indication: Type 2 diabetes mellitus
     Dosage: UNK

REACTIONS (11)
  - Adrenal insufficiency [Unknown]
  - Polyuria [Unknown]
  - Polydipsia [Unknown]
  - Headache [Unknown]
  - Nausea [Unknown]
  - Decreased appetite [Recovering/Resolving]
  - Fatigue [Recovering/Resolving]
  - Hyperglycaemia [Unknown]
  - Hyponatraemia [Unknown]
  - Renal tubular acidosis [Unknown]
  - Drug interaction [Unknown]
